FAERS Safety Report 14782149 (Version 1)
Quarter: 2018Q2

REPORT INFORMATION
  Report Type: Spontaneous
  Country: GB (occurrence: GB)
  Receive Date: 20180420
  Receipt Date: 20180420
  Transmission Date: 20180711
  Serious: Yes (Life-Threatening, Other)
  Sender: FDA-Public Use
  Company Number: GB-TEVA-2018-GB-883562

PATIENT
  Age: 57 Year
  Sex: Male
  Weight: 77 kg

DRUGS (8)
  1. FENBID [Concomitant]
     Active Substance: IBUPROFEN
     Dosage: 3 DOSAGE FORMS DAILY; APPLY TO THE AFFECTED AREA(S).
     Dates: start: 20180123
  2. NAPROXEN. [Suspect]
     Active Substance: NAPROXEN
     Indication: TOOTHACHE
     Dosage: 500 MILLIGRAM DAILY; WITH FOOD
     Route: 048
     Dates: start: 20180124, end: 20180201
  3. STEXEROL-D3 [Concomitant]
     Dosage: AS MAINTENANCE DOSE.
     Dates: start: 20171116
  4. OMEPRAZOLE. [Concomitant]
     Active Substance: OMEPRAZOLE
     Dosage: 20 MILLIGRAM DAILY;
     Dates: start: 20180123
  5. SOLIFENACIN [Concomitant]
     Active Substance: SOLIFENACIN
     Dosage: 5 MILLIGRAM DAILY;
     Dates: start: 20171116
  6. AMITRIPTYLINE [Concomitant]
     Active Substance: AMITRIPTYLINE
     Dosage: 25 MILLIGRAM DAILY; AT NIGHT.
     Dates: start: 20171116, end: 20171218
  7. AMITRIPTYLINE [Concomitant]
     Active Substance: AMITRIPTYLINE
     Dosage: 50 MILLIGRAM DAILY; THEN SEE DOCTOR.
     Dates: start: 20171218
  8. PARACETAMOL [Concomitant]
     Active Substance: ACETAMINOPHEN
     Dosage: 1 TO 2 TABLETS
     Dates: start: 20180123

REACTIONS (1)
  - Swelling face [Recovered/Resolved]

NARRATIVE: CASE EVENT DATE: 20180124
